FAERS Safety Report 4663681-3 (Version None)
Quarter: 2005Q2

REPORT INFORMATION
  Report Type: 
  Country: None (occurrence: None)
  Receive Date: 20050517
  Receipt Date: 20050504
  Transmission Date: 20051028
  Serious: Yes (Hospitalization)
  Sender: FDA-Public Use
  Company Number: 05-05-0810

PATIENT
  Age: 56 Year
  Sex: Female
  Weight: 43 kg

DRUGS (4)
  1. FLUCONAZOLE UNKNOWN [Suspect]
     Dosage: 100MG ORAL
     Route: 048
     Dates: start: 20041006
  2. LOSARTAN POTASSIUM [Suspect]
     Dosage: 200MG ORAL
     Route: 048
     Dates: start: 20041018
  3. PREDNISONE [Suspect]
     Dosage: 7.5MG TDS
     Dates: start: 20041006
  4. SANDIMMUNE [Concomitant]

REACTIONS (2)
  - DRUG INTERACTION [None]
  - HYPOKALAEMIA [None]
